FAERS Safety Report 5231814-6 (Version None)
Quarter: 2007Q1

REPORT INFORMATION
  Report Type: 
  Country: None (occurrence: None)
  Receive Date: 20070206
  Receipt Date: 20070130
  Transmission Date: 20070707
  Serious: Yes (Other)
  Sender: FDA-Public Use
  Company Number: FR-PFIZER INC-2007008831

PATIENT
  Age: 79 Year
  Sex: Male

DRUGS (1)
  1. LYRICA [Suspect]
     Indication: NEURALGIA
     Dosage: DAILY DOSE:300MG

REACTIONS (2)
  - CONFUSIONAL STATE [None]
  - OBSESSIVE-COMPULSIVE DISORDER [None]
